FAERS Safety Report 5457281-5 (Version None)
Quarter: 2007Q3

REPORT INFORMATION
  Report Type: 
  Country: None (occurrence: None)
  Receive Date: 20070918
  Receipt Date: 20070702
  Transmission Date: 20080115
  Serious: Yes (Hospitalization)
  Sender: FDA-Public Use
  Company Number: US-ASTRAZENECA-2007UW01968

PATIENT
  Age: 18859 Day
  Sex: Female
  Weight: 66.8 kg

DRUGS (6)
  1. SEROQUEL [Suspect]
     Indication: SLEEP DISORDER
     Dosage: 25-300MG
     Route: 048
     Dates: start: 20021102, end: 20060101
  2. WELLBUTRIN [Concomitant]
     Dates: start: 20021213
  3. BYETTA [Concomitant]
     Dates: start: 20050822
  4. HUMALOG [Concomitant]
     Dates: start: 20051209
  5. LANTUS [Concomitant]
     Dates: start: 20060116
  6. METHADONE HCL [Concomitant]
     Dates: start: 20030327, end: 20060829

REACTIONS (2)
  - DIABETES MELLITUS INADEQUATE CONTROL [None]
  - HYPOGLYCAEMIA [None]
